FAERS Safety Report 4483526-4 (Version None)
Quarter: 2004Q4

REPORT INFORMATION
  Report Type: 
  Country: None (occurrence: None)
  Receive Date: 20041019
  Receipt Date: 20041019
  Transmission Date: 20050328
  Serious: Yes (Hospitalization)
  Sender: FDA-Public Use
  Company Number: None

PATIENT
  Sex: Male

DRUGS (14)
  1. WARFARIN 5 MG [Suspect]
     Indication: ATRIAL FIBRILLATION
     Dosage: 7.5 MG MWFSA ORAL
     Route: 048
  2. WARFARIN 5 MG [Suspect]
     Indication: ATRIAL FIBRILLATION
     Dosage: 5 MG STTH ORAL
     Route: 048
  3. DIPHENHYDRAMINE HCL [Concomitant]
  4. FLUNISOLIDE [Concomitant]
  5. FERROUS SULFATE TAB [Concomitant]
  6. OMEPRAZOLE [Concomitant]
  7. FUROSEMIDE [Concomitant]
  8. SPIRONOLACTONE [Concomitant]
  9. ALLOPURINOL [Concomitant]
  10. COMBIVENT [Concomitant]
  11. SIMETHICONE [Concomitant]
  12. LISINOPRIL [Concomitant]
  13. ISOSORBIDE DINITRATE [Concomitant]
  14. DIGOXIN [Concomitant]

REACTIONS (1)
  - HAEMATOCHEZIA [None]
